FAERS Safety Report 6395651-1 (Version None)
Quarter: 2009Q4

REPORT INFORMATION
  Report Type: 
  Country: None (occurrence: None)
  Receive Date: 20091006
  Receipt Date: 20090915
  Transmission Date: 20100525
  Serious: Yes (Death)
  Sender: FDA-Public Use
  Company Number: D0900428

PATIENT
  Age: 58 Year
  Sex: Male

DRUGS (7)
  1. AMANTADINE HYDROCHLORIDE [Suspect]
     Dosage: 2 IN 1 D, OARL
     Route: 048
     Dates: start: 19990101, end: 20081101
  2. NORVASC [Concomitant]
  3. HYZAAR [Concomitant]
  4. FOSAMAX [Concomitant]
  5. TIZANIDINE HCL [Concomitant]
  6. LIPITOR [Concomitant]
  7. LASIX [Concomitant]

REACTIONS (2)
  - DIZZINESS [None]
  - PULMONARY EMBOLISM [None]
